FAERS Safety Report 11784407 (Version 1)
Quarter: 2015Q4

REPORT INFORMATION
  Report Type: Spontaneous
  Country: JP (occurrence: JP)
  Receive Date: 20151129
  Receipt Date: 20151129
  Transmission Date: 20160305
  Serious: Yes (Hospitalization)
  Sender: FDA-Public Use
  Company Number: JP-MYLANLABS-2015M1041920

PATIENT

DRUGS (4)
  1. NEDAPLATIN [Suspect]
     Active Substance: NEDAPLATIN
     Indication: OROPHARYNGEAL CANCER STAGE I
     Dosage: 50MG/M2 ON DAYS 1 AND 8
     Route: 065
  2. NEDAPLATIN [Suspect]
     Active Substance: NEDAPLATIN
     Indication: OESOPHAGEAL CARCINOMA
     Dosage: 50MG/M2 ON DAYS 1 AND 8
     Route: 065
  3. FLUOROURACIL. [Suspect]
     Active Substance: FLUOROURACIL
     Indication: OROPHARYNGEAL CANCER STAGE I
     Dosage: 400MG/M2/DAY IN DAYS 1-5 AND 8-12
     Route: 065
  4. FLUOROURACIL. [Suspect]
     Active Substance: FLUOROURACIL
     Indication: OESOPHAGEAL CARCINOMA
     Dosage: 400MG/M2/DAY IN DAYS 1-5 AND 8-12
     Route: 065

REACTIONS (2)
  - Stomatitis [Recovered/Resolved]
  - Myelodysplastic syndrome [Unknown]
